FAERS Safety Report 6382105-1 (Version None)
Quarter: 2009Q3

REPORT INFORMATION
  Report Type: 
  Country: None (occurrence: None)
  Receive Date: 20090930
  Receipt Date: 20090824
  Transmission Date: 20100115
  Serious: Yes (Hospitalization, Other)
  Sender: FDA-Public Use
  Company Number: US-BAXTER-2008BH010979

PATIENT
  Age: 59 Year
  Sex: Male
  Weight: 71 kg

DRUGS (24)
  1. HEPARIN SODIUM INJECTION [Suspect]
     Indication: PULMONARY EMBOLISM
     Route: 040
     Dates: start: 20071226, end: 20071226
  2. HEPARIN SODIUM INJECTION [Suspect]
     Indication: INTRAVENOUS CATHETER MANAGEMENT
     Route: 040
     Dates: start: 20071226, end: 20071226
  3. HEPARIN SODIUM INJECTION [Suspect]
     Route: 040
     Dates: start: 20071227, end: 20071227
  4. HEPARIN SODIUM INJECTION [Suspect]
     Route: 040
     Dates: start: 20071227, end: 20071227
  5. HEPARIN SODIUM INJECTION [Suspect]
     Route: 040
     Dates: start: 20080105, end: 20080203
  6. HEPARIN SODIUM INJECTION [Suspect]
     Route: 040
     Dates: start: 20080105, end: 20080203
  7. HEPARIN SODIUM INJECTION [Suspect]
     Route: 040
     Dates: start: 20080403, end: 20080403
  8. HEPARIN SODIUM INJECTION [Suspect]
     Route: 040
     Dates: start: 20080403, end: 20080403
  9. HEPARIN SODIUM INJECTION [Suspect]
     Route: 040
     Dates: start: 20080404, end: 20080405
  10. HEPARIN SODIUM INJECTION [Suspect]
     Route: 040
     Dates: start: 20080404, end: 20080405
  11. HEPARIN SODIUM 1,000 UNITS AND SODIUM CHLORIDE 0.9% [Suspect]
     Indication: PULMONARY EMBOLISM
     Route: 042
     Dates: start: 20071226, end: 20080101
  12. HEPARIN SODIUM 1,000 UNITS AND SODIUM CHLORIDE 0.9% [Suspect]
     Indication: ATRIAL FIBRILLATION
     Route: 042
     Dates: start: 20071226, end: 20080101
  13. HEPARIN SODIUM 1,000 UNITS AND SODIUM CHLORIDE 0.9% [Suspect]
     Route: 042
     Dates: start: 20080403, end: 20080401
  14. HEPARIN SODIUM 1,000 UNITS AND SODIUM CHLORIDE 0.9% [Suspect]
     Route: 042
     Dates: start: 20080403, end: 20080401
  15. HEPARIN SODIUM 5,000 UNITS IN DEXTROSE 5% [Suspect]
     Indication: DRUG USE FOR UNKNOWN INDICATION
     Route: 042
     Dates: start: 20080421, end: 20080422
  16. ZOLOFT [Concomitant]
     Indication: DRUG USE FOR UNKNOWN INDICATION
  17. LACTOBACILLUS ACIDOPHILUS [Concomitant]
     Indication: DRUG USE FOR UNKNOWN INDICATION
  18. ASPIRIN [Concomitant]
     Indication: DRUG USE FOR UNKNOWN INDICATION
  19. VANCOMYCIN [Concomitant]
     Indication: DRUG USE FOR UNKNOWN INDICATION
     Route: 042
  20. WARFARIN [Concomitant]
     Indication: DRUG USE FOR UNKNOWN INDICATION
  21. TYLENOL (CAPLET) [Concomitant]
     Indication: DRUG USE FOR UNKNOWN INDICATION
  22. LIPITOR [Concomitant]
     Indication: DRUG USE FOR UNKNOWN INDICATION
  23. NEXIUM                                  /UNK/ [Concomitant]
     Indication: DRUG USE FOR UNKNOWN INDICATION
  24. COREG [Concomitant]
     Indication: DRUG USE FOR UNKNOWN INDICATION

REACTIONS (24)
  - ABDOMINAL PAIN [None]
  - ATRIAL FIBRILLATION [None]
  - BLOOD CULTURE POSITIVE [None]
  - CARDIAC PERFORATION [None]
  - CHEST PAIN [None]
  - CHILLS [None]
  - CORONARY ARTERY THROMBOSIS [None]
  - DIZZINESS [None]
  - DYSPNOEA [None]
  - FATIGUE [None]
  - FEELING ABNORMAL [None]
  - LABORATORY TEST INTERFERENCE [None]
  - MEMORY IMPAIRMENT [None]
  - NIGHT SWEATS [None]
  - OEDEMA PERIPHERAL [None]
  - PACEMAKER COMPLICATION [None]
  - PAIN [None]
  - PALPITATIONS [None]
  - PERICARDIAL EFFUSION [None]
  - PLEURAL EFFUSION [None]
  - PYREXIA [None]
  - STAPHYLOCOCCAL INFECTION [None]
  - SUBACUTE ENDOCARDITIS [None]
  - TREMOR [None]
